FAERS Safety Report 9665397 (Version 1)
Quarter: 2013Q4

REPORT INFORMATION
  Report Type: Spontaneous
  Country: US (occurrence: US)
  Receive Date: 20131104
  Receipt Date: 20131104
  Transmission Date: 20140711
  Serious: No
  Sender: FDA-Public Use
  Company Number: US-009507513-1310USA005321

PATIENT
  Age: 31 Year
  Sex: Female

DRUGS (4)
  1. PEGINTRON [Suspect]
     Indication: SYSTEMIC MASTOCYTOSIS
     Dosage: 50 MCG ONCE A WEEK, REDIPEN
     Route: 058
     Dates: start: 201111
  2. CETIRIZINE HYDROCHLORIDE [Concomitant]
  3. CITALOPRAM [Concomitant]
  4. ADVIL [Concomitant]

REACTIONS (3)
  - Alopecia [Not Recovered/Not Resolved]
  - Product quality issue [Unknown]
  - Off label use [Unknown]
